FAERS Safety Report 8541804-3 (Version None)
Quarter: 2012Q3

REPORT INFORMATION
  Report Type: 
  Country: None (occurrence: None)
  Receive Date: 20120726
  Receipt Date: 20110906
  Transmission Date: 20120928
  Serious: No
  Sender: FDA-Public Use
  Company Number: US-ASTRAZENECA-2011SE53412

PATIENT
  Age: 51 Year
  Sex: Female
  Weight: 52.6 kg

DRUGS (3)
  1. SEROQUEL [Suspect]
     Indication: DEPRESSION
     Route: 048
  2. SALBUTERIN [Concomitant]
  3. SEROQUEL [Suspect]
     Route: 048

REACTIONS (5)
  - WEIGHT INCREASED [None]
  - INSOMNIA [None]
  - FEELING ABNORMAL [None]
  - AFFECTIVE DISORDER [None]
  - DRUG DOSE OMISSION [None]
